FAERS Safety Report 17598098 (Version 3)
Quarter: 2020Q2

REPORT INFORMATION
  Report Type: Report from Study
  Country: US (occurrence: US)
  Receive Date: 20200330
  Receipt Date: 20200617
  Transmission Date: 20200713
  Serious: Yes (Other)
  Sender: FDA-Public Use
  Company Number: US-ROCHE-2570330

PATIENT
  Sex: Female

DRUGS (4)
  1. ACTEMRA [Suspect]
     Active Substance: TOCILIZUMAB
     Indication: OSTEOARTHRITIS
     Dosage: INJECT 162MG SUBCUTANEOUSLY EVERY WEEK.
     Route: 058
  2. ACTEMRA [Suspect]
     Active Substance: TOCILIZUMAB
     Indication: RHEUMATOID ARTHRITIS
  3. ACTEMRA [Suspect]
     Active Substance: TOCILIZUMAB
     Indication: OSTEOARTHRITIS
  4. ACTEMRA [Suspect]
     Active Substance: TOCILIZUMAB
     Indication: SENILE OSTEOPOROSIS

REACTIONS (1)
  - Squamous cell carcinoma of lung [Unknown]
